FAERS Safety Report 7554987-9 (Version None)
Quarter: 2011Q2

REPORT INFORMATION
  Report Type: 
  Country: None (occurrence: None)
  Receive Date: 20110617
  Receipt Date: 20110610
  Transmission Date: 20111010
  Serious: Yes (Other)
  Sender: FDA-Public Use
  Company Number: JP-PFIZER INC-2011121273

PATIENT
  Age: 20 Year
  Sex: Female
  Weight: 13 kg

DRUGS (15)
  1. ALFAROL [Concomitant]
  2. LASIX [Concomitant]
     Route: 065
  3. ZYVOX [Suspect]
     Dosage: 400 MG, 2X/DAY
     Dates: start: 20110610
  4. DEPAKENE [Concomitant]
     Route: 048
  5. BIOFERMIN [Concomitant]
     Route: 048
  6. ATARAX [Concomitant]
     Route: 065
  7. PENTOIL [Concomitant]
     Route: 065
  8. ZOSYN [Concomitant]
     Route: 041
  9. CLONAZEPAM [Concomitant]
     Route: 048
  10. ZYVOX [Suspect]
     Indication: STAPHYLOCOCCAL INFECTION
     Dosage: 600 MG, 2X/DAY
     Route: 041
     Dates: start: 20110517
  11. VOLTAREN [Concomitant]
     Route: 048
  12. SOLDACTONE [Concomitant]
     Route: 065
  13. TOPIRAMATE [Concomitant]
     Route: 048
  14. LANSOPRAZOLE [Concomitant]
     Route: 048
  15. TANNALBIN [Concomitant]
     Route: 048

REACTIONS (3)
  - LACTIC ACIDOSIS [None]
  - SHOCK HAEMORRHAGIC [None]
  - DRUG INEFFECTIVE FOR UNAPPROVED INDICATION [None]
